FAERS Safety Report 18290073 (Version 1)
Quarter: 2020Q3

REPORT INFORMATION
  Report Type: Spontaneous
  Country: DE (occurrence: DE)
  Receive Date: 20200921
  Receipt Date: 20200921
  Transmission Date: 20201103
  Serious: Yes (Hospitalization, Other)
  Sender: FDA-Public Use
  Company Number: NVSC2020DE250637

PATIENT
  Sex: Male
  Weight: 89 kg

DRUGS (7)
  1. IPILIMUMAB [Suspect]
     Active Substance: IPILIMUMAB
     Dosage: 261 MG
     Route: 065
     Dates: start: 20190924
  2. NIVOLUMAB [Suspect]
     Active Substance: NIVOLUMAB
     Indication: MALIGNANT MELANOMA
     Dosage: 88 MILLIGRAM
     Route: 042
     Dates: start: 20190903, end: 20191105
  3. PACLITAXEL. [Suspect]
     Active Substance: PACLITAXEL
     Indication: MALIGNANT MELANOMA
     Dosage: 473 MG
     Route: 065
     Dates: start: 20200715
  4. IPILIMUMAB [Suspect]
     Active Substance: IPILIMUMAB
     Indication: MALIGNANT MELANOMA
     Dosage: 264 MG, Q3W
     Route: 065
     Dates: start: 20190903, end: 20191105
  5. NIVOLUMAB [Suspect]
     Active Substance: NIVOLUMAB
     Dosage: 87 MILLIGRAM
     Route: 042
     Dates: start: 20190924, end: 20191015
  6. NIVOLUMAB [Suspect]
     Active Substance: NIVOLUMAB
     Dosage: 480 MILLIGRAM, Q4WK
     Route: 042
     Dates: start: 20191217
  7. CARBOPLATIN. [Suspect]
     Active Substance: CARBOPLATIN
     Indication: MALIGNANT MELANOMA
     Dosage: 848 MG
     Route: 065
     Dates: start: 20200715

REACTIONS (8)
  - Aspartate aminotransferase increased [Recovered/Resolved]
  - Hyperhidrosis [Recovered/Resolved]
  - Prescribed underdose [Unknown]
  - Gamma-glutamyltransferase increased [Recovered/Resolved]
  - Colitis [Recovering/Resolving]
  - Fatigue [Recovered/Resolved]
  - Malignant neoplasm progression [Unknown]
  - Dizziness [Recovered/Resolved]

NARRATIVE: CASE EVENT DATE: 20190920
